FAERS Safety Report 8504666-6 (Version None)
Quarter: 2012Q3

REPORT INFORMATION
  Report Type: 
  Country: None (occurrence: None)
  Receive Date: 20120711
  Receipt Date: 20120705
  Transmission Date: 20120928
  Serious: Yes (Hospitalization)
  Sender: FDA-Public Use
  Company Number: US-ABBOTT-12P-163-0937999-00

PATIENT
  Sex: Female
  Weight: 74.91 kg

DRUGS (2)
  1. HYDROCODONE BITARTRATE + ACETAMINOPHEN [Suspect]
     Indication: PAIN
     Dosage: 10/500 MG PRN
     Dates: end: 20120430
  2. BUTRANS [Concomitant]
     Indication: PAIN
     Dosage: PATCH
     Dates: start: 20120419

REACTIONS (4)
  - VOMITING [None]
  - NAUSEA [None]
  - DEHYDRATION [None]
  - BLOOD PRESSURE DECREASED [None]
